FAERS Safety Report 10635780 (Version 2)
Quarter: 2015Q1

REPORT INFORMATION
  Report Type: Spontaneous
  Country: US (occurrence: US)
  Receive Date: 20141205
  Receipt Date: 20150115
  Transmission Date: 20150720
  Serious: Yes (Other)
  Sender: FDA-Public Use
  Company Number: US-ELI_LILLY_AND_COMPANY-US201411010867

PATIENT
  Age: 39 Year
  Sex: Female

DRUGS (7)
  1. ZITHROMAX [Concomitant]
     Active Substance: AZITHROMYCIN DIHYDRATE
  2. ALBUTEROL                          /00139501/ [Concomitant]
     Active Substance: ALBUTEROL
  3. PROZAC [Suspect]
     Active Substance: FLUOXETINE HYDROCHLORIDE
     Indication: DEPRESSION
     Dosage: 20 MG, QD
     Route: 048
  4. PRENATAL VITAMINS                  /01549301/ [Concomitant]
     Active Substance: VITAMINS
  5. NASONEX [Concomitant]
     Active Substance: MOMETASONE FUROATE
  6. TYLENOL [Concomitant]
     Active Substance: ACETAMINOPHEN
  7. IBUPROFEN. [Concomitant]
     Active Substance: IBUPROFEN

REACTIONS (8)
  - Dislocation of vertebra [Unknown]
  - Transverse presentation [Recovered/Resolved]
  - Glucose tolerance impaired in pregnancy [Unknown]
  - Dislocation of vertebra [Unknown]
  - Inguinal hernia [Unknown]
  - Exposure during pregnancy [Recovered/Resolved]
  - Placenta praevia [Unknown]
  - Urinary incontinence [Unknown]

NARRATIVE: CASE EVENT DATE: 20060412
